FAERS Safety Report 8449317-4 (Version None)
Quarter: 2012Q2

REPORT INFORMATION
  Report Type: 
  Country: None (occurrence: None)
  Receive Date: 20120619
  Receipt Date: 20120604
  Transmission Date: 20120825
  Serious: Yes (Other)
  Sender: FDA-Public Use
  Company Number: CHPA2012US011954

PATIENT
  Age: 29 Year
  Sex: Female

DRUGS (1)
  1. EXCEDRIN (MIGRAINE) [Suspect]
     Indication: MIGRAINE
     Dosage: 2 DF, A FEW TIMES A MONTH
     Route: 048

REACTIONS (4)
  - ANAPHYLACTIC SHOCK [None]
  - HEART RATE IRREGULAR [None]
  - CHEST PAIN [None]
  - MOVEMENT DISORDER [None]
